FAERS Safety Report 24682607 (Version 1)
Quarter: 2024Q4

REPORT INFORMATION
  Report Type: Report from Study
  Country: CA (occurrence: CA)
  Receive Date: 20241130
  Receipt Date: 20241130
  Transmission Date: 20250115
  Serious: Yes (Hospitalization, Other)
  Sender: ALEXION PHARMACEUTICALS
  Company Number: CA-AstraZeneca-CH-00753160A

PATIENT

DRUGS (8)
  1. CAPIVASERTIB [Suspect]
     Active Substance: CAPIVASERTIB
     Indication: Breast cancer metastatic
  2. CAPIVASERTIB [Suspect]
     Active Substance: CAPIVASERTIB
  3. CAPIVASERTIB [Suspect]
     Active Substance: CAPIVASERTIB
  4. CAPIVASERTIB [Suspect]
     Active Substance: CAPIVASERTIB
  5. FASLODEX [Suspect]
     Active Substance: FULVESTRANT
     Indication: Breast cancer metastatic
  6. FASLODEX [Suspect]
     Active Substance: FULVESTRANT
  7. FASLODEX [Suspect]
     Active Substance: FULVESTRANT
  8. FASLODEX [Suspect]
     Active Substance: FULVESTRANT

REACTIONS (6)
  - Illness [Recovering/Resolving]
  - Diarrhoea [Recovering/Resolving]
  - Nausea [Recovering/Resolving]
  - Anaemia [Recovering/Resolving]
  - Pain [Recovering/Resolving]
  - Constipation [Unknown]
